FAERS Safety Report 7073954-5 (Version None)
Quarter: 2010Q4

REPORT INFORMATION
  Report Type: 
  Country: None (occurrence: None)
  Receive Date: 20101029
  Receipt Date: 20101020
  Transmission Date: 20110411
  Serious: Yes (Death, Other)
  Sender: FDA-Public Use
  Company Number: JP-GENZYME-THYM-1001974

PATIENT
  Sex: Female
  Weight: 50 kg

DRUGS (9)
  1. THYMOGLOBULIN [Suspect]
     Indication: CHRONIC GRAFT VERSUS HOST DISEASE
     Dosage: 50 MG, QD
     Route: 042
     Dates: start: 20090821, end: 20090821
  2. METHYLPREDNISOLONE SODIUM SUCCINATE [Concomitant]
     Indication: CHRONIC GRAFT VERSUS HOST DISEASE
     Dosage: UNK
     Dates: start: 20090821, end: 20090823
  3. FILGRASTIM [Concomitant]
     Indication: FULL BLOOD COUNT DECREASED
     Dosage: UNK
  4. VANCOMYCIN HYDROCHLORIDE [Concomitant]
     Indication: SEPSIS
     Dosage: UNK
  5. OCTREOTIDE ACETATE [Concomitant]
     Indication: CHRONIC GRAFT VERSUS HOST DISEASE
  6. MYCOPHENOLATE MOFETIL [Concomitant]
     Indication: CHRONIC GRAFT VERSUS HOST DISEASE
  7. ZOLEDRONIC ACID [Concomitant]
     Indication: OSTEOPOROSIS
  8. FUROSEMIDE [Concomitant]
     Indication: OEDEMA
  9. CORTICOSTEROID NOS [Concomitant]
     Indication: CHRONIC GRAFT VERSUS HOST DISEASE

REACTIONS (2)
  - DEEP VEIN THROMBOSIS [None]
  - STAPHYLOCOCCAL BACTERAEMIA [None]
